FAERS Safety Report 7504604-9 (Version None)
Quarter: 2011Q2

REPORT INFORMATION
  Report Type: 
  Country: None (occurrence: None)
  Receive Date: 20110525
  Receipt Date: 20110513
  Transmission Date: 20111010
  Serious: Yes (Other)
  Sender: FDA-Public Use
  Company Number: DE-CELGENEUS-062-50794-11051841

PATIENT
  Age: 47 Year

DRUGS (1)
  1. VIDAZA [Suspect]
     Route: 050
     Dates: end: 20110315

REACTIONS (5)
  - LIVER DISORDER [None]
  - NEUTROPENIA [None]
  - THROMBOCYTOPENIA [None]
  - CARDIOVASCULAR DISORDER [None]
  - ANAEMIA [None]
